FAERS Safety Report 10290277 (Version 1)
Quarter: 2014Q3

REPORT INFORMATION
  Report Type: Spontaneous
  Country: US (occurrence: None)
  Receive Date: 20140707
  Receipt Date: 20140707
  Transmission Date: 20150326
  Serious: No
  Sender: FDA-Public Use
  Company Number: None

PATIENT
  Age: 50 Year
  Sex: Female
  Weight: 90.72 kg

DRUGS (1)
  1. LOVAZA [Suspect]
     Active Substance: OMEGA-3-ACID ETHYL ESTERS
     Indication: BLOOD TRIGLYCERIDES INCREASED
     Dosage: 1 CAPSULE, TWICE DAILY, TAKEN BY MOUTH
     Route: 048
     Dates: start: 20130331, end: 20140706

REACTIONS (5)
  - Skin odour abnormal [None]
  - Product label issue [None]
  - Product dosage form issue [None]
  - Drug ineffective [None]
  - Overdose [None]

NARRATIVE: CASE EVENT DATE: 20130701
